FAERS Safety Report 9495642 (Version 1)
Quarter: 2013Q3

REPORT INFORMATION
  Report Type: Spontaneous
  Country: GB (occurrence: GB)
  Receive Date: 20130903
  Receipt Date: 20130903
  Transmission Date: 20140515
  Serious: Yes (Hospitalization, Other)
  Sender: FDA-Public Use
  Company Number: GB-TEVA-429161ISR

PATIENT
  Age: 86 Year
  Sex: Female

DRUGS (5)
  1. LANSOPRAZOLE [Suspect]
     Route: 048
  2. QUETIAPINE [Suspect]
     Indication: CONFUSIONAL STATE
     Route: 048
  3. ATENOLOL [Concomitant]
  4. WARFARIN [Concomitant]
  5. NITROFURANTOIN [Concomitant]

REACTIONS (2)
  - Inappropriate antidiuretic hormone secretion [Recovered/Resolved]
  - Confusional state [Recovering/Resolving]
